FAERS Safety Report 6765091-1 (Version None)
Quarter: 2010Q2

REPORT INFORMATION
  Report Type: 
  Country: None (occurrence: None)
  Receive Date: 20100609
  Receipt Date: 20100609
  Transmission Date: 20101027
  Serious: Yes (Other)
  Sender: FDA-Public Use
  Company Number: None

PATIENT
  Age: 75 Year
  Sex: Male
  Weight: 70 kg

DRUGS (2)
  1. AZTREONAM [Suspect]
     Indication: SEPSIS
     Dosage: 2GM EVERY 8 HOURS IV
     Route: 042
     Dates: start: 20100525, end: 20100527
  2. AZTREONAM [Suspect]
     Indication: URINARY TRACT INFECTION
     Dosage: 2GM EVERY 8 HOURS IV
     Route: 042
     Dates: start: 20100525, end: 20100527

REACTIONS (1)
  - WHITE BLOOD CELL COUNT DECREASED [None]
